FAERS Safety Report 5444556-9 (Version None)
Quarter: 2007Q3

REPORT INFORMATION
  Report Type: 
  Country: None (occurrence: None)
  Receive Date: 20070904
  Receipt Date: 20070904
  Transmission Date: 20080115
  Serious: No
  Sender: FDA-Public Use
  Company Number: None

PATIENT
  Age: 48 Year
  Sex: Female
  Weight: 79.3795 kg

DRUGS (1)
  1. CYMBALTA [Suspect]
     Indication: FIBROMYALGIA
     Dosage: 30 MG QD PO
     Route: 048
     Dates: start: 20070629, end: 20070629

REACTIONS (11)
  - ABNORMAL SENSATION IN EYE [None]
  - EYE PRURITUS [None]
  - HOLMES-ADIE PUPIL [None]
  - IMPAIRED DRIVING ABILITY [None]
  - INSOMNIA [None]
  - MIOSIS [None]
  - MYDRIASIS [None]
  - OCULAR HYPERAEMIA [None]
  - PUPILS UNEQUAL [None]
  - VISION BLURRED [None]
  - VISUAL DISTURBANCE [None]
